FAERS Safety Report 8539950-3 (Version None)
Quarter: 2012Q3

REPORT INFORMATION
  Report Type: 
  Country: None (occurrence: None)
  Receive Date: 20120726
  Receipt Date: 20120723
  Transmission Date: 20120928
  Serious: Yes (Other)
  Sender: FDA-Public Use
  Company Number: US-PFIZER INC-2012178670

PATIENT
  Sex: Male

DRUGS (5)
  1. REMICADE [Suspect]
     Indication: PROCTITIS ULCERATIVE
     Dosage: ONCE EVERY 3 WEEKS
     Route: 042
  2. CANASA [Concomitant]
     Dosage: UNK
  3. CELEBREX [Suspect]
     Indication: ARTHRITIS
     Dosage: UNK
  4. PREDNISONE [Concomitant]
     Dosage: 60 MG, UNK
  5. ASACOL [Concomitant]
     Dosage: UNK

REACTIONS (4)
  - PROCTITIS ULCERATIVE [None]
  - ARTHRITIS [None]
  - GLAUCOMA [None]
  - DRUG EFFECT DECREASED [None]
